FAERS Safety Report 8562498 (Version 5)
Quarter: 2013Q1

REPORT INFORMATION
  Report Type: Report from Study
  Country: FR (occurrence: FR)
  Receive Date: 20120515
  Receipt Date: 20130215
  Transmission Date: 20140127
  Serious: Yes (Hospitalization)
  Sender: FDA-Public Use
  Company Number: FR-NOVOPROD-350548

PATIENT
  Age: 56 Year
  Sex: Female
  Weight: 86.6 kg

DRUGS (3)
  1. LIRAGLUTIDE FLEXPEN [Suspect]
     Indication: OBESITY
     Dosage: 0.6 MG, QD
     Route: 058
     Dates: start: 20110809
  2. LIRAGLUTIDE FLEXPEN [Suspect]
     Indication: TYPE 2 DIABETES MELLITUS
     Dosage: 3.0 MG, QD
     Route: 058
     Dates: start: 20110919, end: 20110927
  3. LEVOTHYROX [Concomitant]
     Indication: THYROID ADENOMA
     Dosage: 100 ?G, QD
     Route: 048
     Dates: start: 20111223

REACTIONS (1)
  - Thyroid adenoma [Recovered/Resolved]
